FAERS Safety Report 14339508 (Version 2)
Quarter: 2018Q1

REPORT INFORMATION
  Report Type: Spontaneous
  Country: IT (occurrence: CR)
  Receive Date: 20171230
  Receipt Date: 20180327
  Transmission Date: 20180509
  Serious: Yes (Other)
  Sender: FDA-Public Use
  Company Number: IT-AUROBINDO-AUR-APL-2017-48287

PATIENT
  Age: 78 Year
  Sex: Male
  Weight: 80 kg

DRUGS (34)
  1. RIVAROXABAN [Suspect]
     Active Substance: RIVAROXABAN
     Dosage: 20 MILLIGRAM
  2. FUROSEMIDE SODIUM [Suspect]
     Active Substance: FUROSEMIDE SODIUM
     Dosage: 20 MILLIGRAM
  3. SPIRONOLACTONE. [Suspect]
     Active Substance: SPIRONOLACTONE
     Indication: PRODUCT USED FOR UNKNOWN INDICATION
     Dosage: 12.5 MILLIGRAM
     Route: 065
  4. SPIRONOLACTONE. [Suspect]
     Active Substance: SPIRONOLACTONE
     Dosage: 13 MILLIGRAM
  5. ROSUVASTATIN. [Suspect]
     Active Substance: ROSUVASTATIN
     Route: 048
  6. ROSUVASTATIN. [Suspect]
     Active Substance: ROSUVASTATIN
     Route: 048
  7. IRBESARTAN. [Suspect]
     Active Substance: IRBESARTAN
     Indication: PRODUCT USED FOR UNKNOWN INDICATION
     Dosage: 150 MG, DAILY
     Route: 065
  8. IRBESARTAN. [Suspect]
     Active Substance: IRBESARTAN
     Dosage: 150 MILLIGRAM
  9. DILATREND [Suspect]
     Active Substance: CARVEDILOL
     Dosage: 12.5 MILLIGRAM
     Route: 065
  10. DILATREND [Suspect]
     Active Substance: CARVEDILOL
     Dosage: 13 MILLIGRAM
  11. DILATREND [Suspect]
     Active Substance: CARVEDILOL
     Dosage: 25 MILLIGRAM
  12. LEVOTHYROXINE. [Suspect]
     Active Substance: LEVOTHYROXINE
     Indication: PRODUCT USED FOR UNKNOWN INDICATION
     Dosage: 25 MG, 50 MG, 100 MICROGRAM ()
     Route: 065
  13. LEVOTHYROXINE. [Suspect]
     Active Substance: LEVOTHYROXINE
     Dosage: 25 MG, 50 MG, 100 MICROGRAM ()
  14. VALSARTAN. [Suspect]
     Active Substance: VALSARTAN
     Indication: PRODUCT USED FOR UNKNOWN INDICATION
     Dosage: 320 MG, DAILY
     Route: 065
  15. DILATREND [Suspect]
     Active Substance: CARVEDILOL
     Dosage: 25 MG AT THE MORNING AND 12.5 MG AT THE EVENING
     Route: 065
  16. DILATREND [Suspect]
     Active Substance: CARVEDILOL
     Dosage: 50 MILLIGRAM
  17. TIOTROPIUM [Suspect]
     Active Substance: TIOTROPIUM
     Dosage: 1 DOSAGE FORM
  18. FUROSEMIDE SODIUM [Suspect]
     Active Substance: FUROSEMIDE SODIUM
     Indication: PRODUCT USED FOR UNKNOWN INDICATION
     Dosage: 40 MG, DAILY
     Route: 065
  19. VALSARTAN. [Suspect]
     Active Substance: VALSARTAN
  20. FUROSEMIDE SODIUM [Suspect]
     Active Substance: FUROSEMIDE SODIUM
     Dosage: 40 MILLIGRAM
  21. ROSUVASTATIN. [Suspect]
     Active Substance: ROSUVASTATIN
     Indication: PRODUCT USED FOR UNKNOWN INDICATION
     Dosage: 10 MG, UNK
     Route: 065
  22. ROSUVASTATIN. [Suspect]
     Active Substance: ROSUVASTATIN
     Dosage: 40 MG, UNK
     Route: 065
  23. DILATREND [Suspect]
     Active Substance: CARVEDILOL
     Dosage: 50 MG, DAILY
     Route: 065
  24. RIVAROXABAN [Suspect]
     Active Substance: RIVAROXABAN
     Dosage: 15 MILLIGRAM
  25. ROSUVASTATIN. [Suspect]
     Active Substance: ROSUVASTATIN
     Route: 048
  26. DILATREND [Suspect]
     Active Substance: CARVEDILOL
     Dosage: 19 MILLIGRAM
  27. RIVAROXABAN [Suspect]
     Active Substance: RIVAROXABAN
     Indication: PRODUCT USED FOR UNKNOWN INDICATION
     Dosage: 20 MG, DAILY
     Route: 065
  28. TIOTROPIUM [Suspect]
     Active Substance: TIOTROPIUM
     Indication: PRODUCT USED FOR UNKNOWN INDICATION
     Dosage: (1)
     Route: 065
  29. ROSUVASTATIN. [Suspect]
     Active Substance: ROSUVASTATIN
     Indication: PRODUCT USED FOR UNKNOWN INDICATION
     Dosage: 20 MILLIGRAM
     Route: 065
  30. DILATREND [Suspect]
     Active Substance: CARVEDILOL
     Indication: PRODUCT USED FOR UNKNOWN INDICATION
     Dosage: 25 MG, DAILY
     Route: 065
  31. DILATREND [Suspect]
     Active Substance: CARVEDILOL
     Dosage: 38 MILLIGRAM
  32. DILATREND [Suspect]
     Active Substance: CARVEDILOL
     Dosage: 6 MILLIGRAM
  33. RIVAROXABAN [Suspect]
     Active Substance: RIVAROXABAN
     Dosage: 15 MG, DAILY
     Route: 065
  34. FUROSEMIDE SODIUM [Suspect]
     Active Substance: FUROSEMIDE SODIUM
     Dosage: 20 MG, DAILY
     Route: 065

REACTIONS (31)
  - N-terminal prohormone brain natriuretic peptide abnormal [Unknown]
  - Tricuspid valve incompetence [Unknown]
  - Fall [Unknown]
  - Pulmonary arterial pressure abnormal [Unknown]
  - Ventricular hypokinesia [Unknown]
  - Dyspnoea [Unknown]
  - Aortic aneurysm [Unknown]
  - Cardiac failure chronic [Recovering/Resolving]
  - Oedema peripheral [Unknown]
  - Chronic obstructive pulmonary disease [Unknown]
  - Oxygen saturation increased [Unknown]
  - C-reactive protein abnormal [Unknown]
  - Dyslipidaemia [Unknown]
  - Ejection fraction decreased [Unknown]
  - Fractured coccyx [Unknown]
  - Bundle branch block left [Unknown]
  - Mitral valve incompetence [Unknown]
  - Goitre [Unknown]
  - Atrial fibrillation [Unknown]
  - Cardiomegaly [Unknown]
  - Blood pressure increased [Unknown]
  - Electrocardiogram QRS complex abnormal [Unknown]
  - Obstructive airways disorder [Unknown]
  - Left ventricular dilatation [Unknown]
  - Conduction disorder [Unknown]
  - Type 2 diabetes mellitus [Unknown]
  - Blood thyroid stimulating hormone abnormal [Unknown]
  - Hypertension [Unknown]
  - Bundle branch block right [Unknown]
  - Thyroiditis [Unknown]
  - Brain natriuretic peptide abnormal [Unknown]

NARRATIVE: CASE EVENT DATE: 20150722
